FAERS Safety Report 9729113 (Version 1)
Quarter: 2013Q4

REPORT INFORMATION
  Report Type: Spontaneous
  Country: CA (occurrence: CA)
  Receive Date: 20131204
  Receipt Date: 20131204
  Transmission Date: 20140711
  Serious: Yes (Life-Threatening)
  Sender: FDA-Public Use
  Company Number: CA-JNJFOC-20131200431

PATIENT
  Age: 83 Year
  Sex: Female

DRUGS (7)
  1. XARELTO [Suspect]
     Indication: PRODUCT USED FOR UNKNOWN INDICATION
     Route: 048
  2. BACLOFEN [Concomitant]
     Route: 065
  3. NAPROXEN [Concomitant]
     Route: 065
  4. ROSUVASTATIN [Concomitant]
     Route: 065
  5. DIGOXIN [Concomitant]
     Route: 065
  6. DILTIAZEM [Concomitant]
     Route: 065
  7. LOSARTAN [Concomitant]
     Route: 065

REACTIONS (4)
  - Cerebellar haemorrhage [Unknown]
  - Cerebrovascular accident [Unknown]
  - Dizziness [Unknown]
  - Headache [Unknown]
